FAERS Safety Report 9261708 (Version 1)
Quarter: 2013Q2

REPORT INFORMATION
  Report Type: Spontaneous
  Country: FR (occurrence: FR)
  Receive Date: 20130429
  Receipt Date: 20130429
  Transmission Date: 20140414
  Serious: Yes (Hospitalization)
  Sender: FDA-Public Use
  Company Number: FR-PFIZER INC-2013126258

PATIENT
  Age: 67 Year
  Sex: Female

DRUGS (4)
  1. ZAVEDOS [Suspect]
     Indication: ACUTE MYELOID LEUKAEMIA
     Dosage: UNK
     Route: 048
     Dates: start: 20130104, end: 20130106
  2. VESANOID [Suspect]
     Indication: ACUTE MYELOID LEUKAEMIA
     Dosage: 10 MG
     Route: 048
     Dates: start: 20121229, end: 20130106
  3. VESANOID [Suspect]
     Dosage: 10 MG
     Route: 048
     Dates: start: 20130109, end: 20130115
  4. CYTARABINE EBEWE [Suspect]
     Indication: ACUTE MYELOID LEUKAEMIA
     Dosage: UNK
     Dates: start: 20130103, end: 20130105

REACTIONS (1)
  - Myocarditis [Not Recovered/Not Resolved]
